FAERS Safety Report 10511293 (Version 1)
Quarter: 2014Q4

REPORT INFORMATION
  Report Type: Spontaneous
  Country: CA (occurrence: None)
  Receive Date: 20141008
  Receipt Date: 20141008
  Transmission Date: 20150528
  Serious: Yes (Other)
  Sender: FDA-Public Use
  Company Number: CA-017246

PATIENT
  Age: 74 Year
  Sex: Male

DRUGS (1)
  1. FIRMAGON [Suspect]
     Active Substance: DEGARELIX ACETATE
     Indication: PROSTATE CANCER
     Dosage: 1X/MONTH
     Route: 058
     Dates: start: 20130829

REACTIONS (7)
  - Fatigue [None]
  - Dizziness [None]
  - Pallor [None]
  - Decreased appetite [None]
  - Asthenia [None]
  - Exercise tolerance decreased [None]
  - Decreased activity [None]
